FAERS Safety Report 15888141 (Version 2)
Quarter: 2019Q1

REPORT INFORMATION
  Report Type: Spontaneous
  Country: US (occurrence: US)
  Receive Date: 20190130
  Receipt Date: 20190201
  Transmission Date: 20190417
  Serious: Yes (Death, Other)
  Sender: FDA-Public Use
  Company Number: US-ASTRAZENECA-2018SF34340

PATIENT
  Sex: Female

DRUGS (24)
  1. PHENTERMINE. [Concomitant]
     Active Substance: PHENTERMINE
     Route: 065
     Dates: start: 20131029
  2. PREDNISONE. [Concomitant]
     Active Substance: PREDNISONE
     Dates: start: 20150331
  3. DICLOFENAC [Concomitant]
     Active Substance: DICLOFENAC
     Route: 065
     Dates: start: 20131126
  4. METFORMIN [Concomitant]
     Active Substance: METFORMIN HYDROCHLORIDE
     Route: 065
  5. ARMOUR THYROID [Concomitant]
     Active Substance: THYROID, PORCINE
     Route: 065
     Dates: start: 20150723
  6. HYDROCODONE BITARTRATE AND ACETAMINOPHEN [Concomitant]
     Active Substance: ACETAMINOPHEN\HYDROCODONE BITARTRATE
     Dosage: 10/500
     Route: 065
     Dates: start: 20131029
  7. BROMFED [Concomitant]
     Active Substance: BROMPHENIRAMINE MALEATE\DEXTROMETHORPHAN HYDROBROMIDE\PSEUDOEPHEDRINE HYDROCHLORIDE
     Route: 065
  8. TRIAMTERENE AND HYDROCHLOROTHIAZIDE [Concomitant]
     Active Substance: HYDROCHLOROTHIAZIDE\TRIAMTERENE
     Dosage: 37.5/25
     Dates: start: 20140707
  9. SUCRALFATE. [Concomitant]
     Active Substance: SUCRALFATE
     Route: 065
     Dates: start: 20131029
  10. PROVENTIL HFA [Concomitant]
     Active Substance: ALBUTEROL SULFATE
     Dosage: 90 MCG
     Route: 065
     Dates: start: 20131029
  11. ADVAIR DISKUS [Concomitant]
     Active Substance: FLUTICASONE PROPIONATE\SALMETEROL XINAFOATE
     Dosage: 250/50
     Route: 065
     Dates: start: 20131029
  12. METAXALONE. [Concomitant]
     Active Substance: METAXALONE
     Route: 065
  13. AZITHROMYCIN ANHYDROUS. [Concomitant]
     Active Substance: AZITHROMYCIN ANHYDROUS
     Route: 065
  14. NEXIUM [Suspect]
     Active Substance: ESOMEPRAZOLE MAGNESIUM
     Route: 065
     Dates: start: 20131029
  15. CLONAZEPAM. [Concomitant]
     Active Substance: CLONAZEPAM
     Route: 065
     Dates: start: 20131029
  16. ATENOLOL. [Concomitant]
     Active Substance: ATENOLOL
     Route: 065
     Dates: start: 20150528
  17. SILVER SULFADIAZINE. [Concomitant]
     Active Substance: SILVER SULFADIAZINE
     Dosage: 1%
     Route: 065
     Dates: start: 20150528
  18. NEXIUM [Suspect]
     Active Substance: ESOMEPRAZOLE MAGNESIUM
     Route: 048
     Dates: start: 201310, end: 201606
  19. QUETIAPINE. [Concomitant]
     Active Substance: QUETIAPINE
     Route: 065
     Dates: start: 20131126
  20. CHANTIX [Concomitant]
     Active Substance: VARENICLINE TARTRATE
     Route: 065
  21. LAMOTRIGINE. [Concomitant]
     Active Substance: LAMOTRIGINE
     Route: 065
  22. LYRICA [Concomitant]
     Active Substance: PREGABALIN
     Route: 065
     Dates: start: 20150427
  23. GABAPENTIN. [Concomitant]
     Active Substance: GABAPENTIN
     Route: 065
  24. CARISOPRODOL. [Concomitant]
     Active Substance: CARISOPRODOL
     Route: 065
     Dates: start: 20131126

REACTIONS (3)
  - Death [Fatal]
  - Acute kidney injury [Unknown]
  - Chronic kidney disease [Unknown]
